FAERS Safety Report 6261645-X (Version None)
Quarter: 2009Q3

REPORT INFORMATION
  Report Type: 
  Country: None (occurrence: None)
  Receive Date: 20090707
  Receipt Date: 20090707
  Transmission Date: 20100115
  Serious: No
  Sender: FDA-Public Use
  Company Number: None

PATIENT
  Age: 29 Year
  Sex: Male
  Weight: 124.7392 kg

DRUGS (2)
  1. LEXAPRO [Suspect]
     Indication: ANXIETY
     Dosage: ONCE DAILY
     Dates: start: 20090625, end: 20090630
  2. LEXAPRO [Suspect]
     Indication: DEPRESSION
     Dosage: ONCE DAILY
     Dates: start: 20090625, end: 20090630

REACTIONS (2)
  - THROAT TIGHTNESS [None]
  - UNEVALUABLE EVENT [None]
